FAERS Safety Report 24199377 (Version 1)
Quarter: 2024Q3

REPORT INFORMATION
  Report Type: Report from Study
  Country: TH (occurrence: TH)
  Receive Date: 20240812
  Receipt Date: 20240812
  Transmission Date: 20241016
  Serious: Yes (Death, Other)
  Sender: UCB
  Company Number: TH-UCBSA-2024040242

PATIENT

DRUGS (1)
  1. LEVETIRACETAM [Suspect]
     Active Substance: LEVETIRACETAM
     Indication: Neonatal seizure
     Dosage: 20-10-10 MG/KG/DOSE
     Route: 042

REACTIONS (7)
  - Death [Fatal]
  - Epilepsy [Unknown]
  - Cerebral palsy [Unknown]
  - Developmental delay [Unknown]
  - Adverse drug reaction [Unknown]
  - Off label use [Unknown]
  - Treatment noncompliance [Unknown]
